APPROVED DRUG PRODUCT: MINOXIDIL
Active Ingredient: MINOXIDIL
Strength: 2.5MG
Dosage Form/Route: TABLET;ORAL
Application: A071537 | Product #001
Applicant: USL PHARMA INC
Approved: Dec 16, 1988 | RLD: No | RS: No | Type: DISCN